FAERS Safety Report 13395247 (Version 1)
Quarter: 2017Q1

REPORT INFORMATION
  Report Type: Spontaneous
  Country: US (occurrence: US)
  Receive Date: 20170331
  Receipt Date: 20170331
  Transmission Date: 20170429
  Serious: Yes (Disabling)
  Sender: FDA-Public Use
  Company Number: None

PATIENT
  Age: 58 Year
  Sex: Female
  Weight: 67.5 kg

DRUGS (3)
  1. CIPROFLOXACIN. [Suspect]
     Active Substance: CIPROFLOXACIN
     Indication: EAR INFECTION
     Dosage: ?          QUANTITY:01 TABLET(S);?
     Route: 048
     Dates: start: 20080827, end: 20080907
  2. ARMOUR THYROID [Concomitant]
     Active Substance: THYROID, PORCINE
  3. CIPROFLOXACIN. [Suspect]
     Active Substance: CIPROFLOXACIN
     Indication: EAR INFECTION
     Dosage: ?          QUANTITY:01 TABLET(S);?
     Route: 048
     Dates: start: 20070921, end: 20071001

REACTIONS (20)
  - Ear infection [None]
  - Mouth ulceration [None]
  - Muscular weakness [None]
  - Malaise [None]
  - Tongue discolouration [None]
  - Abdominal pain [None]
  - Tremor [None]
  - Tendonitis [None]
  - Muscle twitching [None]
  - Headache [None]
  - Neck pain [None]
  - Diarrhoea [None]
  - Glucose urine present [None]
  - Myalgia [None]
  - Lung infection [None]
  - Thyroid disorder [None]
  - Rash [None]
  - Asthenia [None]
  - Fatigue [None]
  - Basedow^s disease [None]

NARRATIVE: CASE EVENT DATE: 20080827
